FAERS Safety Report 18266498 (Version 1)
Quarter: 2020Q3

REPORT INFORMATION
  Report Type: Spontaneous
  Country: US (occurrence: US)
  Receive Date: 20200514
  Receipt Date: 20200514
  Transmission Date: 20201103
  Serious: Yes (Other)
  Sender: FDA-Public Use
  Company Number: None

PATIENT
  Age: 1 Year
  Sex: Male

DRUGS (3)
  1. OSELTAMIVIR [Suspect]
     Active Substance: OSELTAMIVIR
     Indication: COVID-19
     Dosage: FREQUENCY: BD
     Dates: start: 2020
  2. VANCOMYCIN [Suspect]
     Active Substance: VANCOMYCIN
     Indication: COVID-19
     Route: 042
     Dates: start: 2020, end: 2020
  3. AMIKACIN. [Suspect]
     Active Substance: AMIKACIN
     Indication: COVID-19
     Route: 042
     Dates: start: 2020, end: 2020

REACTIONS (1)
  - Off label use [None]
